FAERS Safety Report 21981166 (Version 1)
Quarter: 2023Q1

REPORT INFORMATION
  Report Type: Report from Study
  Country: MX (occurrence: MX)
  Receive Date: 20230211
  Receipt Date: 20230211
  Transmission Date: 20230417
  Serious: Yes (Other)
  Sender: FDA-Public Use
  Company Number: MX-002147023-NVSC2023MX026819

PATIENT
  Age: 39 Year
  Sex: Male
  Weight: 56 kg

DRUGS (4)
  1. BUDESONIDE [Suspect]
     Active Substance: BUDESONIDE
     Indication: Cough
     Dosage: 1 DOSAGE FORM, TID,(400 MCG)
     Dates: start: 202201, end: 202208
  2. BUDESONIDE [Suspect]
     Active Substance: BUDESONIDE
     Indication: COVID-19
     Dosage: UNK ( 2 OF 400MCG CAPSULES AND A 200MCG ONE)
  3. BUDESONIDE [Suspect]
     Active Substance: BUDESONIDE
     Dosage: UNK (400MCG CAPSULE WITH A 200MCG)
  4. BUDESONIDE [Suspect]
     Active Substance: BUDESONIDE
     Dosage: 1 DOSAGE FORM, BID (200 MCG)

REACTIONS (3)
  - Gallbladder disorder [Unknown]
  - COVID-19 [Recovered/Resolved]
  - Product use in unapproved indication [Unknown]

NARRATIVE: CASE EVENT DATE: 20220801
